FAERS Safety Report 9394383 (Version 1)
Quarter: 2013Q3

REPORT INFORMATION
  Report Type: Spontaneous
  Country: CA (occurrence: CA)
  Receive Date: 20130711
  Receipt Date: 20130711
  Transmission Date: 20140515
  Serious: Yes (Death)
  Sender: FDA-Public Use
  Company Number: CA-ROCHE-1247405

PATIENT
  Age: 85 Year
  Sex: Male
  Weight: 66.28 kg

DRUGS (6)
  1. TNKASE [Suspect]
     Indication: PRODUCT USED FOR UNKNOWN INDICATION
     Dosage: POWDER FOR SOLUTION INTRAVENOUS
     Route: 042
  2. ACEBUTOLOL [Concomitant]
     Route: 065
  3. A.S.A. [Concomitant]
     Dosage: TABLET (DELAYED-RELEASE) ENTERIC COATED
     Route: 065
  4. HEPARIN SODIUM [Concomitant]
     Route: 042
  5. HYDROCHLOROTHIAZIDE [Concomitant]
     Route: 065
  6. PROSCAR [Concomitant]
     Route: 065

REACTIONS (5)
  - Blood urine present [Fatal]
  - Dysarthria [Fatal]
  - Haemorrhagic stroke [Fatal]
  - Muscular weakness [Fatal]
  - Pupillary reflex impaired [Fatal]
